FAERS Safety Report 20434574 (Version 1)
Quarter: 2022Q1

REPORT INFORMATION
  Report Type: Spontaneous
  Country: US (occurrence: US)
  Receive Date: 20220206
  Receipt Date: 20220206
  Transmission Date: 20220423
  Serious: Yes (Other)
  Sender: FDA-Public Use
  Company Number: US-NOVARTISPH-NVSC2022US019629

PATIENT
  Age: 2 Year
  Sex: Female

DRUGS (6)
  1. CARBOPLATIN [Suspect]
     Active Substance: CARBOPLATIN
     Indication: Optic glioma
     Dosage: UNK
     Route: 065
     Dates: end: 20210928
  2. CARBOPLATIN [Suspect]
     Active Substance: CARBOPLATIN
     Indication: BRAF gene mutation
  3. CARBOPLATIN [Suspect]
     Active Substance: CARBOPLATIN
     Indication: Visual impairment
  4. VINCRISTINE [Suspect]
     Active Substance: VINCRISTINE
     Indication: Optic glioma
     Dosage: UNK
     Route: 065
     Dates: end: 20210928
  5. VINCRISTINE [Suspect]
     Active Substance: VINCRISTINE
     Indication: BRAF gene mutation
  6. VINCRISTINE [Suspect]
     Active Substance: VINCRISTINE
     Indication: Visual impairment

REACTIONS (3)
  - Optic glioma [Unknown]
  - Malignant neoplasm progression [Unknown]
  - Product use in unapproved indication [Unknown]
